FAERS Safety Report 18252943 (Version 2)
Quarter: 2020Q3

REPORT INFORMATION
  Report Type: Spontaneous
  Country: US (occurrence: US)
  Receive Date: 20200910
  Receipt Date: 20200916
  Transmission Date: 20201103
  Serious: Yes (Hospitalization)
  Sender: FDA-Public Use
  Company Number: US-TEVA-2020-US-1163816

PATIENT
  Age: 62 Year
  Sex: Female

DRUGS (31)
  1. CALCIUM [Concomitant]
     Active Substance: CALCIUM
  2. TOPIRAMATE. [Concomitant]
     Active Substance: TOPIRAMATE
  3. AMPHETAMINE/DEXTROAMPHETAMINE [Concomitant]
     Active Substance: AMPHETAMINE\DEXTROAMPHETAMINE
  4. METHYLPRED [Concomitant]
     Active Substance: METHYLPREDNISOLONE
  5. COPAXONE [Suspect]
     Active Substance: GLATIRAMER ACETATE
     Indication: MULTIPLE SCLEROSIS
     Dosage: 17.1429 MILLIGRAM/MILLILITERS DAILY;
     Route: 058
     Dates: start: 20140731
  6. ALPRAZOLAM. [Concomitant]
     Active Substance: ALPRAZOLAM
  7. DONEPEZIL. [Concomitant]
     Active Substance: DONEPEZIL
  8. MAXALT [Concomitant]
     Active Substance: RIZATRIPTAN BENZOATE
  9. DOCUSATE [Concomitant]
     Active Substance: DOCUSATE
  10. LEVOTHYROXIN [Concomitant]
     Active Substance: LEVOTHYROXINE
  11. POLYETH [Concomitant]
  12. VITAMIN D3 [Concomitant]
     Active Substance: CHOLECALCIFEROL
  13. DESVENLAFAXINE. [Concomitant]
     Active Substance: DESVENLAFAXINE
  14. COPAXONE [Suspect]
     Active Substance: GLATIRAMER ACETATE
     Indication: THYROID DISORDER
     Dates: start: 201912, end: 201912
  15. DIAZEPAM. [Concomitant]
     Active Substance: DIAZEPAM
  16. ERYTHROMYCIN. [Concomitant]
     Active Substance: ERYTHROMYCIN
  17. GABAPENTIN. [Concomitant]
     Active Substance: GABAPENTIN
  18. MELATONIN [Concomitant]
     Active Substance: MELATONIN
  19. ONDANSETRON [Concomitant]
     Active Substance: ONDANSETRON
  20. ATORVASTATIN [Concomitant]
     Active Substance: ATORVASTATIN
  21. EFFECOR XR [Concomitant]
  22. ESOMEPRA [Concomitant]
     Active Substance: ESOMEPRAZOLE
  23. EURAX [Concomitant]
     Active Substance: CROTAMITON
  24. DEXAMETHASON [Concomitant]
     Active Substance: DEXAMETHASONE
  25. ESTRACE [Concomitant]
     Active Substance: ESTRADIOL
  26. IRON [Concomitant]
     Active Substance: IRON
  27. QUETIAPINE. [Concomitant]
     Active Substance: QUETIAPINE
  28. VENLAFAXINE [Concomitant]
     Active Substance: VENLAFAXINE HYDROCHLORIDE
  29. TRINTELLX [Concomitant]
  30. OXYCODONE [Concomitant]
     Active Substance: OXYCODONE
  31. VITAMIN E [Concomitant]
     Active Substance: .ALPHA.-TOCOPHEROL

REACTIONS (5)
  - Product dose omission issue [Unknown]
  - Vertigo [Not Recovered/Not Resolved]
  - Product use in unapproved indication [Unknown]
  - Oesophageal operation [Unknown]
  - Illness [Unknown]
